FAERS Safety Report 24353337 (Version 1)
Quarter: 2024Q3

REPORT INFORMATION
  Report Type: Report from Study
  Country: PT (occurrence: PT)
  Receive Date: 20240923
  Receipt Date: 20240923
  Transmission Date: 20241016
  Serious: No
  Sender: ROCHE
  Company Number: PT-ROCHE-3453644

PATIENT
  Age: 67 Year
  Sex: Female
  Weight: 62.0 kg

DRUGS (26)
  1. HERCEPTIN [Suspect]
     Active Substance: TRASTUZUMAB
     Indication: HER2 positive breast cancer
     Route: 042
     Dates: start: 20180321, end: 20180321
  2. HERCEPTIN [Suspect]
     Active Substance: TRASTUZUMAB
     Route: 042
     Dates: start: 20180410, end: 20180702
  3. HERCEPTIN [Suspect]
     Active Substance: TRASTUZUMAB
     Route: 042
     Dates: start: 20190710, end: 20220126
  4. PERJETA [Suspect]
     Active Substance: PERTUZUMAB
     Indication: HER2 positive breast cancer
     Route: 042
     Dates: start: 20180320, end: 20180320
  5. PERJETA [Suspect]
     Active Substance: PERTUZUMAB
     Route: 042
     Dates: start: 20180410, end: 20180702
  6. PERJETA [Suspect]
     Active Substance: PERTUZUMAB
     Route: 042
     Dates: start: 20180710, end: 20220126
  7. KADCYLA [Suspect]
     Active Substance: ADO-TRASTUZUMAB EMTANSINE
     Indication: HER2 positive breast cancer
     Route: 042
     Dates: start: 20220310, end: 20220609
  8. TAXOTERE [Suspect]
     Active Substance: DOCETAXEL
     Indication: HER2 positive breast cancer
     Route: 042
     Dates: start: 20180321, end: 20180702
  9. TAXOTERE [Suspect]
     Active Substance: DOCETAXEL
     Route: 042
     Dates: start: 20190710, end: 20190710
  10. FAM-TRASTUZUMAB DERUXTECAN-NXKI [Suspect]
     Active Substance: FAM-TRASTUZUMAB DERUXTECAN-NXKI
     Indication: HER2 positive breast cancer
     Route: 042
     Dates: start: 20221202, end: 20230609
  11. FAM-TRASTUZUMAB DERUXTECAN-NXKI [Suspect]
     Active Substance: FAM-TRASTUZUMAB DERUXTECAN-NXKI
     Dosage: MOST RECENT DOSE PRIOR TO THE EVENT: 28/SEP/2023
     Route: 042
     Dates: start: 20221202, end: 20230824
  12. FAM-TRASTUZUMAB DERUXTECAN-NXKI [Suspect]
     Active Substance: FAM-TRASTUZUMAB DERUXTECAN-NXKI
     Route: 042
     Dates: start: 20230928
  13. FAM-TRASTUZUMAB DERUXTECAN-NXKI [Suspect]
     Active Substance: FAM-TRASTUZUMAB DERUXTECAN-NXKI
     Route: 042
     Dates: start: 20231102
  14. PANTOPRAZOLE SODIUM [Concomitant]
     Active Substance: PANTOPRAZOLE SODIUM
     Dosage: ONGOING = CHECKED
     Dates: start: 20170615
  15. RAMIPRIL [Concomitant]
     Active Substance: RAMIPRIL
     Dosage: ONGOING = CHECKED
     Dates: start: 20210211
  16. AMLODIPINE [Concomitant]
     Active Substance: AMLODIPINE BESYLATE
     Dosage: ONGOING = CHECKED
     Dates: start: 20211216
  17. LEVOTHYROXINE [Concomitant]
     Active Substance: LEVOTHYROXINE\LEVOTHYROXINE SODIUM
     Dosage: ONGOING = CHECKED
     Dates: start: 20211216
  18. CLAVULANIC ACID [Concomitant]
     Active Substance: CLAVULANIC ACID
     Indication: Upper respiratory tract infection
     Route: 048
     Dates: start: 20180702, end: 20180709
  19. FOSFOMYCIN [Concomitant]
     Active Substance: FOSFOMYCIN
     Route: 048
     Dates: start: 20181214, end: 20181214
  20. TRAZODONE [Concomitant]
     Active Substance: TRAZODONE HYDROCHLORIDE
     Route: 048
     Dates: start: 20211216, end: 202210
  21. AMOXICILLIN [Concomitant]
     Active Substance: AMOXICILLIN
  22. MODERNA COVID-19 VACCINE [Concomitant]
     Active Substance: ELASOMERAN
  23. ASTRAZENECA COVID-19 VACCINE [Concomitant]
     Active Substance: AZD-1222
  24. BUTYLSCOPOLAMINE [Concomitant]
     Active Substance: BUTYLSCOPOLAMINE
     Dates: start: 20230808
  25. METOCLOPRAMIDE [Concomitant]
     Active Substance: METOCLOPRAMIDE
     Dates: start: 20230808
  26. ACETAMINOPHEN [Concomitant]
     Active Substance: ACETAMINOPHEN
     Dates: start: 20220125

REACTIONS (1)
  - Neutropenia [Recovered/Resolved]

NARRATIVE: CASE EVENT DATE: 20230630
